FAERS Safety Report 9394553 (Version 1)
Quarter: 2013Q3

REPORT INFORMATION
  Report Type: Report from Study
  Country: US (occurrence: US)
  Receive Date: 20130711
  Receipt Date: 20130711
  Transmission Date: 20140515
  Serious: Yes (Hospitalization, Other)
  Sender: FDA-Public Use
  Company Number: PHEH2013US014424

PATIENT
  Sex: Male

DRUGS (2)
  1. TASIGNA [Suspect]
     Indication: ACUTE MYELOID LEUKAEMIA
  2. TASIGNA [Suspect]
     Indication: OFF LABEL USE

REACTIONS (5)
  - Acute myeloid leukaemia [Unknown]
  - Leukaemia recurrent [Recovering/Resolving]
  - Chronic myeloid leukaemia [Unknown]
  - Tumour lysis syndrome [Recovering/Resolving]
  - Renal failure [Recovering/Resolving]
